FAERS Safety Report 21161766 (Version 1)
Quarter: 2022Q3

REPORT INFORMATION
  Report Type: Spontaneous
  Country: US (occurrence: None)
  Receive Date: 20220802
  Receipt Date: 20220802
  Transmission Date: 20221026
  Serious: No
  Sender: FDA-Public Use
  Company Number: None

PATIENT
  Age: 61 Year
  Sex: Female
  Weight: 74.25 kg

DRUGS (9)
  1. PAXLOVID [Suspect]
     Active Substance: NIRMATRELVIR\RITONAVIR
  2. VERAPAMIL [Concomitant]
     Active Substance: VERAPAMIL HYDROCHLORIDE
  3. SINGULAIR [Concomitant]
     Active Substance: MONTELUKAST SODIUM
  4. LEXAPRO [Concomitant]
     Active Substance: ESCITALOPRAM OXALATE
  5. FLONASE [Concomitant]
     Active Substance: FLUTICASONE PROPIONATE
  6. PREVACID [Concomitant]
     Active Substance: LANSOPRAZOLE
  7. DEVICE [Concomitant]
     Active Substance: DEVICE
  8. VITAMIN D NOS [Concomitant]
     Active Substance: VITAMIN D NOS
  9. VITAMINS [Concomitant]
     Active Substance: VITAMINS

REACTIONS (4)
  - Syncope [None]
  - Blood pressure decreased [None]
  - Heart rate decreased [None]
  - Product label issue [None]

NARRATIVE: CASE EVENT DATE: 20220802
